FAERS Safety Report 9763571 (Version 2)
Quarter: 2013Q4

REPORT INFORMATION
  Report Type: Report from Study
  Country: IE (occurrence: IE)
  Receive Date: 20131216
  Receipt Date: 20131221
  Transmission Date: 20140711
  Serious: Yes (Hospitalization)
  Sender: FDA-Public Use
  Company Number: US-ASTRAZENECA-2013SE90494

PATIENT
  Age: 4 Month
  Sex: Female

DRUGS (5)
  1. SYNAGIS [Suspect]
     Indication: PREMATURE BABY
     Route: 030
  2. ABIDEC [Concomitant]
     Indication: PRODUCT USED FOR UNKNOWN INDICATION
  3. GALFER [Concomitant]
     Indication: PRODUCT USED FOR UNKNOWN INDICATION
  4. FOLIC ACID [Concomitant]
     Indication: PRODUCT USED FOR UNKNOWN INDICATION
  5. DOMPERIDONE [Concomitant]
     Indication: PRODUCT USED FOR UNKNOWN INDICATION

REACTIONS (5)
  - Pyrexia [Not Recovered/Not Resolved]
  - Gastroenteritis [Recovered/Resolved]
  - Viral infection [Recovered/Resolved]
  - Nasal congestion [Unknown]
  - Ocular hyperaemia [Unknown]
